FAERS Safety Report 7930808-7 (Version None)
Quarter: 2011Q4

REPORT INFORMATION
  Report Type: 
  Country: None (occurrence: None)
  Receive Date: 20111121
  Receipt Date: 20111115
  Transmission Date: 20120403
  Serious: Yes (Hospitalization)
  Sender: FDA-Public Use
  Company Number: JP-GLAXOSMITHKLINE-B0763444A

PATIENT
  Sex: Female

DRUGS (3)
  1. ARASENA-A [Concomitant]
     Indication: HERPES ZOSTER
     Route: 061
     Dates: start: 20111108
  2. UNKNOWN DRUG [Concomitant]
     Indication: HYPERTENSION
     Route: 048
  3. VALTREX [Suspect]
     Indication: HERPES ZOSTER
     Dosage: 3000MG PER DAY
     Route: 048
     Dates: start: 20111108, end: 20111112

REACTIONS (5)
  - NAUSEA [None]
  - RENAL FAILURE ACUTE [None]
  - ABDOMINAL PAIN UPPER [None]
  - LOSS OF CONTROL OF LEGS [None]
  - SPEECH DISORDER [None]
